FAERS Safety Report 9165026 (Version 1)
Quarter: 2013Q1

REPORT INFORMATION
  Report Type: Spontaneous
  Country: US (occurrence: None)
  Receive Date: 20130313
  Receipt Date: 20130313
  Transmission Date: 20140127
  Serious: Yes (Hospitalization)
  Sender: FDA-Public Use
  Company Number: None

PATIENT
  Age: 76 Year
  Sex: Male

DRUGS (1)
  1. MOMETASONE [Suspect]
     Dates: start: 20070803, end: 20130118

REACTIONS (3)
  - Substance-induced psychotic disorder [None]
  - Delusion [None]
  - Mental status changes [None]
